FAERS Safety Report 10504833 (Version 1)
Quarter: 2014Q4

REPORT INFORMATION
  Report Type: Spontaneous
  Country: US (occurrence: US)
  Receive Date: 20141008
  Receipt Date: 20141008
  Transmission Date: 20150528
  Serious: Yes (Hospitalization, Other)
  Sender: FDA-Public Use
  Company Number: US-ABBVIE-14P-163-1290776-00

PATIENT
  Age: 59 Year
  Sex: Male

DRUGS (1)
  1. ANDROGEL [Suspect]
     Active Substance: TESTOSTERONE
     Indication: BLOOD TESTOSTERONE DECREASED
     Dosage: MULTIPLE DOSES
     Route: 062

REACTIONS (16)
  - Injury [Unknown]
  - Social problem [Unknown]
  - Myocardial infarction [Unknown]
  - Emotional distress [Unknown]
  - Physical disability [Unknown]
  - Emotional disorder [Unknown]
  - Ventricular fibrillation [Unknown]
  - Coronary artery occlusion [Unknown]
  - Spinal cord infarction [Unknown]
  - Paralysis [Unknown]
  - Coronary artery thrombosis [Unknown]
  - Pain [Unknown]
  - Economic problem [Unknown]
  - Anxiety [Unknown]
  - Impaired work ability [Unknown]
  - Spinal cord injury [Unknown]

NARRATIVE: CASE EVENT DATE: 20111030
